FAERS Safety Report 12444676 (Version 1)
Quarter: 2016Q2

REPORT INFORMATION
  Report Type: Report from Study
  Country: BR (occurrence: BR)
  Receive Date: 20160607
  Receipt Date: 20160607
  Transmission Date: 20160815
  Serious: Yes (Hospitalization)
  Sender: FDA-Public Use
  Company Number: PHHY2016BR076809

PATIENT
  Age: 72 Year
  Sex: Male
  Weight: 89 kg

DRUGS (2)
  1. DIOVAN AMLO FIX [Suspect]
     Active Substance: AMLODIPINE\VALSARTAN
     Indication: HYPERTENSION
     Dosage: 1 DF (AMLODIPINE 320 MG, VALSARTAN 5 MG), QD
     Route: 048
  2. GALVUS MET [Suspect]
     Active Substance: METFORMIN HYDROCHLORIDE\VILDAGLIPTIN
     Indication: DIABETES PROPHYLAXIS
     Dosage: 1 DF (METFORMIN 850 MG, VILDAGLIPTIN 50 MG), BID
     Route: 048

REACTIONS (6)
  - Pneumonitis [Unknown]
  - Product use issue [Unknown]
  - Asthma [Unknown]
  - Pulmonary mass [Unknown]
  - Chronic obstructive pulmonary disease [Unknown]
  - Pneumonia [Unknown]

NARRATIVE: CASE EVENT DATE: 201501
